FAERS Safety Report 24723136 (Version 1)
Quarter: 2024Q4

REPORT INFORMATION
  Report Type: Spontaneous
  Country: US (occurrence: None)
  Receive Date: 20241211
  Receipt Date: 20241211
  Transmission Date: 20250115
  Serious: Yes (Other)
  Sender: Public
  Company Number: None

PATIENT
  Age: 34 Year
  Sex: Female
  Weight: 70 kg

DRUGS (1)
  1. SOLRIAMFETOL [Suspect]
     Active Substance: SOLRIAMFETOL
     Indication: Narcolepsy
     Dates: start: 20240531, end: 20240701

REACTIONS (2)
  - Hallucination, auditory [None]
  - Paranoia [None]

NARRATIVE: CASE EVENT DATE: 20240626
